FAERS Safety Report 6296976-0 (Version None)
Quarter: 2009Q3

REPORT INFORMATION
  Report Type: 
  Country: None (occurrence: None)
  Receive Date: 20090804
  Receipt Date: 20090723
  Transmission Date: 20100115
  Serious: Yes (Death)
  Sender: FDA-Public Use
  Company Number: FR-ELI_LILLY_AND_COMPANY-FR200906005528

PATIENT
  Age: 36 Year
  Sex: Male
  Weight: 70 kg

DRUGS (6)
  1. ZYPREXA [Suspect]
     Indication: SCHIZOAFFECTIVE DISORDER
     Dosage: UNK, UNK
     Dates: start: 20070101, end: 20080601
  2. ZYPREXA [Suspect]
     Dosage: 50 MG, DAILY (1/D)
     Route: 048
     Dates: start: 20080601
  3. ZYPREXA [Suspect]
     Dosage: UNK, UNKNOWN
     Dates: start: 20080101
  4. ATARAX [Concomitant]
     Indication: SLEEP DISORDER
     Dosage: 100 MG, DAILY (1/D)
     Route: 048
  5. IMOVANE [Concomitant]
     Indication: SLEEP DISORDER
     Dosage: 7.5 MG, DAILY (1/D)
     Route: 048
  6. MEPRONIZINE [Concomitant]
     Indication: SLEEP DISORDER
     Dosage: 1 D/F, DAILY (1/D)
     Route: 048

REACTIONS (4)
  - DRUG ABUSE [None]
  - DRUG TOXICITY [None]
  - INTENTIONAL DRUG MISUSE [None]
  - OVERDOSE [None]
